FAERS Safety Report 13726686 (Version 1)
Quarter: 2017Q3

REPORT INFORMATION
  Report Type: Spontaneous
  Country: US (occurrence: US)
  Receive Date: 20170707
  Receipt Date: 20170707
  Transmission Date: 20171127
  Serious: Yes (Hospitalization)
  Sender: FDA-Public Use
  Company Number: US-UNITED THERAPEUTICS-UNT-2017-009671

PATIENT
  Age: 40 Year
  Sex: Female
  Weight: 52.15 kg

DRUGS (3)
  1. REMODULIN [Suspect]
     Active Substance: TREPROSTINIL
     Indication: PULMONARY HYPERTENSION
     Dosage: 0.162 ?G/KG, CONTINUING
     Route: 041
     Dates: start: 20100726
  2. REMODULIN [Suspect]
     Active Substance: TREPROSTINIL
     Dosage: 0.165 ?G/KG, CONTINUING
     Route: 041
  3. OPSUMIT [Concomitant]
     Active Substance: MACITENTAN
     Indication: PRODUCT USED FOR UNKNOWN INDICATION

REACTIONS (4)
  - Decubitus ulcer [Unknown]
  - Osteomyelitis [Unknown]
  - Terminal state [Unknown]
  - Pulmonary hypertension [Unknown]

NARRATIVE: CASE EVENT DATE: 201706
